FAERS Safety Report 20214179 (Version 1)
Quarter: 2021Q4

REPORT INFORMATION
  Report Type: Spontaneous
  Country: US (occurrence: None)
  Receive Date: 20211221
  Receipt Date: 20211221
  Transmission Date: 20220303
  Serious: No
  Sender: FDA-Public Use
  Company Number: None

PATIENT
  Sex: Female

DRUGS (1)
  1. CURAD ALCOHOL PREP PADS MEDIUM [Suspect]
     Active Substance: ISOPROPYL ALCOHOL

REACTIONS (1)
  - Pain in extremity [None]
